FAERS Safety Report 20962477 (Version 2)
Quarter: 2022Q2

REPORT INFORMATION
  Report Type: Spontaneous
  Country: US (occurrence: US)
  Receive Date: 20220615
  Receipt Date: 20220615
  Transmission Date: 20220721
  Serious: No
  Sender: FDA-Public Use
  Company Number: US-PFIZER INC-202200830627

PATIENT
  Age: 70 Year
  Sex: Male

DRUGS (15)
  1. PAXLOVID [Suspect]
     Active Substance: NIRMATRELVIR\RITONAVIR
     Indication: COVID-19 treatment
     Dosage: UNK
  2. SILDENAFIL CITRATE [Suspect]
     Active Substance: SILDENAFIL CITRATE
     Dosage: UNK
  3. SIMVASTATIN [Suspect]
     Active Substance: SIMVASTATIN
     Dosage: UNK
  4. DICLOFENAC [Concomitant]
     Active Substance: DICLOFENAC
     Dosage: UNK
  5. METFORMIN [Concomitant]
     Active Substance: METFORMIN HYDROCHLORIDE
     Dosage: UNK
  6. LISINOPRIL [Concomitant]
     Active Substance: LISINOPRIL
     Dosage: UNK
  7. CLOMIPHENE CITRATE [Concomitant]
     Active Substance: CLOMIPHENE CITRATE
     Dosage: UNK
  8. B50 COMPLEX [Concomitant]
     Dosage: UNK
  9. MENAQUINONE 6 [Concomitant]
     Active Substance: MENAQUINONE 6
     Dosage: UNK
  10. VITAMIN D3 [Concomitant]
     Active Substance: CHOLECALCIFEROL
     Dosage: UNK
  11. BAYER ASPIRIN [Concomitant]
     Active Substance: ASPIRIN
     Dosage: UNK
  12. TYLENOL [Concomitant]
     Active Substance: ACETAMINOPHEN
     Dosage: UNK
  13. ADVIL [Concomitant]
     Active Substance: IBUPROFEN
     Dosage: UNK
  14. FLORASTOR [LACTOBACILLUS ACIDOPHILUS] [Concomitant]
     Dosage: UNK
  15. CITRUCEL [Concomitant]
     Active Substance: METHYLCELLULOSE (4000 MPA.S)
     Dosage: UNK

REACTIONS (1)
  - Contraindicated product administered [Unknown]
